FAERS Safety Report 16726471 (Version 2)
Quarter: 2019Q3

REPORT INFORMATION
  Report Type: Report from Study
  Country: US (occurrence: US)
  Receive Date: 20190821
  Receipt Date: 20190829
  Transmission Date: 20191005
  Serious: Yes (Death, Hospitalization)
  Sender: FDA-Public Use
  Company Number: US-ACTELION-A-US2019-194363

PATIENT
  Age: 10 Month
  Sex: Male

DRUGS (10)
  1. TRACLEER [Suspect]
     Active Substance: BOSENTAN
     Indication: PULMONARY ARTERIAL HYPERTENSION
     Dosage: 16 MG, BID
     Route: 048
     Dates: start: 20190219, end: 20190711
  2. CLONIDINE. [Concomitant]
     Active Substance: CLONIDINE
     Dosage: 5.3 MG/KG, Q6HRS
     Route: 042
  3. CHLOROTHIAZIDE. [Concomitant]
     Active Substance: CHLOROTHIAZIDE
     Dosage: 10 MG/KG, BID
     Route: 042
  4. SILDENAFIL. [Concomitant]
     Active Substance: SILDENAFIL
     Dosage: 8 MG, TID
     Route: 048
  5. ENOXAPARIN [Concomitant]
     Active Substance: ENOXAPARIN
     Dosage: 6.5 MG, QD
     Route: 058
  6. ASA [Concomitant]
     Active Substance: ASPIRIN
     Dosage: 40 MG, QD
  7. DIAZEPAM. [Concomitant]
     Active Substance: DIAZEPAM
     Dosage: 2 MG, Q6HRS
  8. INDERAL [Concomitant]
     Active Substance: PROPRANOLOL HYDROCHLORIDE
     Dosage: 0.5 MG/KG, BID
     Route: 042
  9. BUMETANIDE. [Concomitant]
     Active Substance: BUMETANIDE
     Dosage: 0.15 MG, Q6HRS
     Route: 042
  10. ALDACTONE [Concomitant]
     Active Substance: SPIRONOLACTONE
     Dosage: 15 MG, QD

REACTIONS (5)
  - Withdrawal of life support [Fatal]
  - Neurological decompensation [Unknown]
  - Pulmonary arterial hypertension [Unknown]
  - Ascites [Unknown]
  - Cardiac arrest [Unknown]

NARRATIVE: CASE EVENT DATE: 20190220
